FAERS Safety Report 14312512 (Version 1)
Quarter: 2017Q4

REPORT INFORMATION
  Report Type: Spontaneous
  Country: US (occurrence: US)
  Receive Date: 20171220
  Receipt Date: 20171220
  Transmission Date: 20180321
  Serious: No
  Sender: FDA-Public Use
  Company Number: None

PATIENT
  Age: 82 Year
  Sex: Male

DRUGS (1)
  1. CAPECITABINE 500MG ACCORD [Suspect]
     Active Substance: CAPECITABINE
     Indication: AUTOIMMUNE HEPATITIS
     Route: 048
     Dates: start: 20171128

REACTIONS (1)
  - Insomnia [None]

NARRATIVE: CASE EVENT DATE: 20171205
